FAERS Safety Report 5594706-9 (Version None)
Quarter: 2007Q4

REPORT INFORMATION
  Report Type: 
  Country: None (occurrence: None)
  Receive Date: 20071218
  Receipt Date: 20070702
  Transmission Date: 20080405
  Serious: Yes (Hospitalization)
  Sender: FDA-Public Use
  Company Number: 2006121890

PATIENT
  Age: 38 Year
  Sex: Female
  Weight: 89.8 kg

DRUGS (2)
  1. BEXTRA [Suspect]
     Indication: PAIN
     Dosage: 40 MG (20 MG,2 IN 1 D)
     Dates: start: 20020701, end: 20030401
  2. VIOXX [Suspect]
     Dosage: ORAL
     Route: 048
     Dates: start: 20020101

REACTIONS (1)
  - MYOCARDIAL INFARCTION [None]
